FAERS Safety Report 21379168 (Version 8)
Quarter: 2023Q1

REPORT INFORMATION
  Report Type: Report from Study
  Country: BR (occurrence: BR)
  Receive Date: 20220927
  Receipt Date: 20230109
  Transmission Date: 20230418
  Serious: Yes (Death, Other)
  Sender: FDA-Public Use
  Company Number: BR-NOVARTISPH-NVSC2022BR201270

PATIENT
  Age: 72 Year
  Sex: Female
  Weight: 52 kg

DRUGS (5)
  1. KISQALI [Suspect]
     Active Substance: RIBOCICLIB
     Indication: Product used for unknown indication
     Dosage: 3 DOSAGE FORM (21 DAYS)
     Route: 065
     Dates: start: 20220831
  2. KISQALI [Suspect]
     Active Substance: RIBOCICLIB
     Dosage: UNK
     Route: 065
  3. KISQALI [Suspect]
     Active Substance: RIBOCICLIB
     Dosage: UNK
     Route: 065
  4. KISQALI [Suspect]
     Active Substance: RIBOCICLIB
     Dosage: UNK
     Route: 065
     Dates: start: 20221128, end: 20221229
  5. ANASTROZOLE [Suspect]
     Active Substance: ANASTROZOLE
     Indication: Product used for unknown indication
     Dosage: UNK
     Route: 065
     Dates: start: 20220826

REACTIONS (19)
  - Death [Fatal]
  - Loss of consciousness [Unknown]
  - Liver disorder [Recovered/Resolved]
  - Speech disorder [Unknown]
  - Malaise [Unknown]
  - Epistaxis [Unknown]
  - Eating disorder [Unknown]
  - Hypoaesthesia [Unknown]
  - Nervousness [Unknown]
  - Blood pressure increased [Unknown]
  - Anxiety [Unknown]
  - Agitation [Unknown]
  - Tremor [Unknown]
  - Condition aggravated [Unknown]
  - Gait inability [Unknown]
  - Asthenia [Unknown]
  - Vomiting [Recovered/Resolved]
  - Pain [Recovering/Resolving]
  - Abdominal discomfort [Unknown]

NARRATIVE: CASE EVENT DATE: 20220831
